FAERS Safety Report 26017557 (Version 1)
Quarter: 2025Q4

REPORT INFORMATION
  Report Type: Spontaneous
  Country: SA (occurrence: SA)
  Receive Date: 20251110
  Receipt Date: 20251110
  Transmission Date: 20260117
  Serious: Yes (Other)
  Sender: CHEPLAPHARM
  Company Number: SA-CHEPLA-2025012661

PATIENT
  Age: 18 Year
  Sex: Male
  Weight: 35 kg

DRUGS (16)
  1. GANCICLOVIR [Suspect]
     Active Substance: GANCICLOVIR
     Indication: Cytomegalovirus infection
     Dosage: DAILY PROPHYLAXIS?DAILY DOSE: 5 MILLIGRAM/KG
  2. GANCICLOVIR [Suspect]
     Active Substance: GANCICLOVIR
     Indication: Cytomegalovirus infection
     Dosage: BID?DAILY DOSE: 10 MILLIGRAM/KG
  3. VALGANCICLOVIR [Suspect]
     Active Substance: VALGANCICLOVIR
     Indication: Cytomegalovirus infection
     Dosage: BID?DAILY DOSE: 1800 MILLIGRAM
  4. VALGANCICLOVIR [Suspect]
     Active Substance: VALGANCICLOVIR
     Indication: Cytomegalovirus infection
     Dosage: PROPHYLAXIS?DAILY DOSE: 900 MILLIGRAM
  5. METHYLPREDNISOLONE [Suspect]
     Active Substance: METHYLPREDNISOLONE
     Indication: Cytomegalovirus infection
     Dosage: ONCE ?DAILY DOSE: 500 MILLIGRAM
  6. METHYLPREDNISOLONE [Suspect]
     Active Substance: METHYLPREDNISOLONE
     Indication: Cytomegalovirus infection
     Dosage: AT 10 MONTHS POST-TRANSPLANT, FOLLOWED BY GRADUAL TAPERING?DAILY DOSE: 250 MILLIGRAM
  7. METHYLPREDNISOLONE [Suspect]
     Active Substance: METHYLPREDNISOLONE
     Indication: Cytomegalovirus infection
     Dosage: DURING FIRST ACR EPISODE?DAILY DOSE: 500 MILLIGRAM
  8. FOSCARNET [Suspect]
     Active Substance: FOSCARNET
     Indication: Cytomegalovirus gastroenteritis
     Dosage: TID?DAILY DOSE: 180 MILLIGRAM/KG
  9. MARIBAVIR [Suspect]
     Active Substance: MARIBAVIR
     Indication: Cytomegalovirus infection
     Dosage: BID?DAILY DOSE: 800 MILLIGRAM
  10. LETERMOVIR [Suspect]
     Active Substance: LETERMOVIR
     Indication: Cytomegalovirus infection
     Dosage: DAILY?DAILY DOSE: 480 MILLIGRAM
  11. ANTI-THYMOCYTE GLOBULIN (RABBIT) NOS [Concomitant]
     Active Substance: LAPINE T-LYMPHOCYTE IMMUNE GLOBULIN
  12. TACROLIMUS [Concomitant]
     Active Substance: TACROLIMUS
     Indication: Cytomegalovirus infection
     Dosage: MAINTENANCE
  13. INFLIXIMAB [Concomitant]
     Active Substance: INFLIXIMAB
  14. VEDOLIZUMAB [Concomitant]
     Active Substance: VEDOLIZUMAB
     Dosage: SINGLE DOSE
  15. EVEROLIMUS [Concomitant]
     Active Substance: EVEROLIMUS
  16. SIROLIMUS [Concomitant]
     Active Substance: SIROLIMUS

REACTIONS (3)
  - Acute kidney injury [Unknown]
  - Transplant rejection [Unknown]
  - Drug ineffective [Unknown]
